FAERS Safety Report 5534240-5 (Version None)
Quarter: 2007Q4

REPORT INFORMATION
  Report Type: 
  Country: None (occurrence: None)
  Receive Date: 20071120
  Receipt Date: 20071002
  Transmission Date: 20080405
  Serious: No
  Sender: FDA-Public Use
  Company Number: WAES 0710USA00663

PATIENT
  Age: 40 Year
  Sex: Female

DRUGS (2)
  1. JANUVIA [Suspect]
     Indication: BLOOD GLUCOSE
     Dosage: 100 MG/DAILY/PO
     Route: 048
  2. METFORMIN HCL [Concomitant]

REACTIONS (1)
  - VISION BLURRED [None]
